FAERS Safety Report 7666551-1 (Version None)
Quarter: 2011Q3

REPORT INFORMATION
  Report Type: 
  Country: None (occurrence: None)
  Receive Date: 20110806
  Receipt Date: 20110418
  Transmission Date: 20111222
  Serious: No
  Sender: FDA-Public Use
  Company Number: US-ABBOTT-11P-163-0720588-00

PATIENT
  Sex: Female
  Weight: 66.738 kg

DRUGS (6)
  1. NIASPAN [Suspect]
     Indication: BLOOD CHOLESTEROL INCREASED
     Dates: start: 20110201
  2. PLAQUENIL [Concomitant]
     Indication: ARTHRITIS
  3. PROZAC [Concomitant]
     Indication: DEPRESSION
  4. ASPIRIN [Concomitant]
     Indication: PRODUCT USED FOR UNKNOWN INDICATION
  5. AVAPRO [Concomitant]
     Indication: HYPERTENSION
  6. WELCHOL [Concomitant]
     Indication: BLOOD CHOLESTEROL INCREASED

REACTIONS (2)
  - FEELING HOT [None]
  - PRURITUS [None]
